FAERS Safety Report 13464754 (Version 3)
Quarter: 2017Q2

REPORT INFORMATION
  Report Type: Spontaneous
  Country: AT (occurrence: AT)
  Receive Date: 20170420
  Receipt Date: 20170510
  Transmission Date: 20170830
  Serious: Yes (Hospitalization)
  Sender: FDA-Public Use
  Company Number: AT-ALLERGAN-1708957US

PATIENT
  Age: 71 Year
  Sex: Male

DRUGS (3)
  1. THROMBO ASS [Concomitant]
     Active Substance: ASPIRIN
     Indication: PRODUCT USED FOR UNKNOWN INDICATION
     Dosage: 100 MG, UNK
  2. OZURDEX [Suspect]
     Active Substance: DEXAMETHASONE
     Dosage: 0.7 MG, SINGLE
     Route: 031
     Dates: start: 20170222, end: 20170222
  3. OZURDEX [Suspect]
     Active Substance: DEXAMETHASONE
     Indication: CYSTOID MACULAR OEDEMA
     Dosage: 0.7 MG, SINGLE
     Route: 031
     Dates: start: 20170222, end: 20170222

REACTIONS (3)
  - Product container issue [Unknown]
  - Injection site pain [Recovering/Resolving]
  - Vitreous haemorrhage [Recovering/Resolving]

NARRATIVE: CASE EVENT DATE: 20170222
